FAERS Safety Report 8866233 (Version 1)
Quarter: 2012Q4

REPORT INFORMATION
  Report Type: 
  Country: CA (occurrence: CA)
  Receive Date: 20121025
  Receipt Date: 20121025
  Transmission Date: 20130627
  Serious: Yes (Death, Other)
  Sender: FDA-Public Use
  Company Number: PHHY2012CA042083

PATIENT
  Age: 66 Year
  Sex: Male

DRUGS (1)
  1. SANDOSTATIN LAR [Suspect]
     Indication: GASTROINTESTINAL ANGIODYSPLASIA
     Dosage: 20 mg, Once a month
     Route: 030
     Dates: start: 20120417, end: 20120914

REACTIONS (3)
  - Death [Fatal]
  - Hyperglycaemia [Recovering/Resolving]
  - Blood pressure systolic increased [Unknown]
